FAERS Safety Report 7366469-8 (Version None)
Quarter: 2011Q1

REPORT INFORMATION
  Report Type: 
  Country: None (occurrence: None)
  Receive Date: 20110311
  Receipt Date: 20110223
  Transmission Date: 20110831
  Serious: Yes (Death, Hospitalization)
  Sender: FDA-Public Use
  Company Number: 027043

PATIENT
  Sex: Male
  Weight: 75 kg

DRUGS (23)
  1. KALIUM /00031402/ [Concomitant]
  2. FOSAMAX [Concomitant]
  3. HEPARIN SODIUM [Concomitant]
  4. AMLODIPINE BESYLATE [Concomitant]
  5. SCOPODERM /00008701/ [Concomitant]
  6. FLUTIDE [Concomitant]
  7. ACETYLCYSTEINE [Concomitant]
  8. MCP /00041901/ [Concomitant]
  9. ATACAND HCT [Concomitant]
  10. FENTANYL [Concomitant]
  11. PERENTEROL /00243701/ [Concomitant]
  12. NEXIUM [Concomitant]
  13. METFORMIN [Concomitant]
  14. VIMPAT [Suspect]
     Indication: EPILEPSY
     Dosage: (50 MG QD ORAL) (100 MG BID ORAL) (100 MG QD)
     Route: 048
     Dates: start: 20101026
  15. VIMPAT [Suspect]
     Indication: EPILEPSY
     Dosage: (50 MG QD ORAL) (100 MG BID ORAL) (100 MG QD)
     Route: 048
     Dates: start: 20101001
  16. VIMPAT [Suspect]
     Indication: EPILEPSY
     Dosage: (50 MG QD ORAL) (100 MG BID ORAL) (100 MG QD)
     Route: 048
     Dates: start: 20101025, end: 20101025
  17. KEPPRA [Concomitant]
  18. PREDNISOLON /00016201/ [Concomitant]
  19. THIAMINE HCL [Concomitant]
  20. SIOFOR [Concomitant]
  21. FRAGMIN [Concomitant]
  22. SULTANOL /00139501/ [Concomitant]
  23. SODIUM CHLORIDE [Concomitant]

REACTIONS (35)
  - C-REACTIVE PROTEIN INCREASED [None]
  - RED CELL DISTRIBUTION WIDTH INCREASED [None]
  - PNEUMONIA ASPIRATION [None]
  - PARANOIA [None]
  - DYSPEPSIA [None]
  - ABASIA [None]
  - WHITE BLOOD CELL COUNT INCREASED [None]
  - DYSPHAGIA [None]
  - FALL [None]
  - ARTHROPATHY [None]
  - MUSCULAR WEAKNESS [None]
  - HAEMOGLOBIN DECREASED [None]
  - BLOOD CREATINE PHOSPHOKINASE MB INCREASED [None]
  - WHITE BLOOD CELLS URINE POSITIVE [None]
  - MUSCULOSKELETAL PAIN [None]
  - SENSORY DISTURBANCE [None]
  - FATIGUE [None]
  - DEHYDRATION [None]
  - COGNITIVE DISORDER [None]
  - SOMNOLENCE [None]
  - BLOOD POTASSIUM INCREASED [None]
  - DYSSTASIA [None]
  - GENERAL PHYSICAL HEALTH DETERIORATION [None]
  - DECREASED VIBRATORY SENSE [None]
  - DISTURBANCE IN ATTENTION [None]
  - RED BLOOD CELL COUNT DECREASED [None]
  - CONFUSIONAL STATE [None]
  - UNEVALUABLE EVENT [None]
  - DISORIENTATION [None]
  - AGITATION [None]
  - BLOOD SODIUM DECREASED [None]
  - ACUTE PRERENAL FAILURE [None]
  - BLOOD FIBRINOGEN INCREASED [None]
  - FEAR [None]
  - PSYCHOTIC DISORDER [None]
